FAERS Safety Report 7513747-5 (Version None)
Quarter: 2011Q2

REPORT INFORMATION
  Report Type: 
  Country: None (occurrence: None)
  Receive Date: 20110531
  Receipt Date: 20110530
  Transmission Date: 20111010
  Serious: Yes (Hospitalization, Other)
  Sender: FDA-Public Use
  Company Number: US-PFIZER INC-2011116480

PATIENT
  Sex: Female
  Weight: 127 kg

DRUGS (5)
  1. NORVASC [Concomitant]
     Indication: HYPERTENSION
     Dosage: 5 MG, DAILY
     Route: 048
  2. LYRICA [Suspect]
     Indication: SPONDYLITIS
     Dosage: 50 MG, DAILY
     Route: 048
     Dates: start: 20080101
  3. LYRICA [Suspect]
     Dosage: 75 MG, UNK
     Route: 048
  4. NEBIVOLOL [Concomitant]
     Indication: HYPERTENSION
     Dosage: 10 MG, DAILY
     Route: 048
  5. LYRICA [Suspect]
     Dosage: 100 MG, UNK
     Route: 048
     Dates: end: 20080701

REACTIONS (6)
  - VISUAL IMPAIRMENT [None]
  - PHOTOPHOBIA [None]
  - VOMITING [None]
  - HEADACHE [None]
  - MIGRAINE [None]
  - NAUSEA [None]
